FAERS Safety Report 19165748 (Version 2)
Quarter: 2021Q3

REPORT INFORMATION
  Report Type: Spontaneous
  Country: US (occurrence: US)
  Receive Date: 20210421
  Receipt Date: 20210705
  Transmission Date: 20211014
  Serious: Yes (Death)
  Sender: FDA-Public Use
  Company Number: US-PFIZER INC-2020166470

PATIENT
  Age: 84 Year
  Sex: Male
  Weight: 73.94 kg

DRUGS (2)
  1. VYNDAMAX [Suspect]
     Active Substance: TAFAMIDIS
     Dosage: 61 MG
  2. VYNDAMAX [Suspect]
     Active Substance: TAFAMIDIS
     Indication: AMYLOIDOSIS
     Dosage: 1 DF, DAILY
     Route: 048
     Dates: start: 20200410

REACTIONS (2)
  - Off label use [Unknown]
  - Death [Fatal]

NARRATIVE: CASE EVENT DATE: 20200410
